FAERS Safety Report 13719007 (Version 3)
Quarter: 2018Q1

REPORT INFORMATION
  Report Type: Report from Study
  Country: US (occurrence: US)
  Receive Date: 20170705
  Receipt Date: 20180301
  Transmission Date: 20180508
  Serious: No
  Sender: FDA-Public Use
  Company Number: PHEH2017US020572

PATIENT
  Sex: Female

DRUGS (1)
  1. ILARIS [Suspect]
     Active Substance: CANAKINUMAB
     Indication: STILL^S DISEASE
     Dosage: 300 MG, EVERY 21 DAYS
     Route: 058

REACTIONS (3)
  - Sinusitis [Unknown]
  - Pharyngitis streptococcal [Unknown]
  - Inappropriate schedule of drug administration [Unknown]
